FAERS Safety Report 24709060 (Version 1)
Quarter: 2024Q4

REPORT INFORMATION
  Report Type: Spontaneous
  Country: GR (occurrence: GR)
  Receive Date: 20241208
  Receipt Date: 20241208
  Transmission Date: 20250115
  Serious: Yes (Other)
  Sender: SANOFI AVENTIS
  Company Number: GR-SANOFI-02327500

PATIENT
  Age: 71 Year
  Sex: Male

DRUGS (4)
  1. GLIMEPIRIDE [Suspect]
     Active Substance: GLIMEPIRIDE
     Dosage: 2 IN THE MORNING 2 IN THE AFTERNOON 2 IN THE EVENING
  2. ZOMARIL [Concomitant]
     Dosage: UNK
  3. FENOFIBRATE\SIMVASTATIN [Concomitant]
     Active Substance: FENOFIBRATE\SIMVASTATIN
     Dosage: UNK
  4. JARDIANCE [Concomitant]
     Active Substance: EMPAGLIFLOZIN
     Dosage: UNK

REACTIONS (1)
  - Bladder cancer [Unknown]
